FAERS Safety Report 8181938-9 (Version None)
Quarter: 2012Q1

REPORT INFORMATION
  Report Type: 
  Country: None (occurrence: None)
  Receive Date: 20120302
  Receipt Date: 20120229
  Transmission Date: 20120608
  Serious: Yes (Death, Congenital Anomaly)
  Sender: FDA-Public Use
  Company Number: FR-PFIZER INC-2012053211

PATIENT
  Sex: Female

DRUGS (2)
  1. NEURONTIN [Suspect]
     Dosage: 600 MG, 1X/DAY
     Route: 064
     Dates: end: 20080101
  2. LIORESAL [Suspect]
     Dosage: 60 MG, 1X/DAY
     Route: 064
     Dates: end: 20080101

REACTIONS (2)
  - ANENCEPHALY [None]
  - MATERNAL EXPOSURE TIMING UNSPECIFIED [None]
